FAERS Safety Report 9216964 (Version 4)
Quarter: 2013Q2

REPORT INFORMATION
  Report Type: Spontaneous
  Country: US (occurrence: None)
  Receive Date: 20130403
  Receipt Date: 20130621
  Transmission Date: 20140414
  Serious: Yes (Hospitalization)
  Sender: FDA-Public Use
  Company Number: CABO-13002424

PATIENT
  Age: 52 Year
  Sex: Male
  Weight: 87.5 kg

DRUGS (1)
  1. COMETRIQ (CABOZANTINIB) CAPSULE [Suspect]
     Indication: THYROID CANCER
     Route: 048
     Dates: start: 20130221, end: 20130320

REACTIONS (19)
  - Musculoskeletal pain [None]
  - Genital rash [None]
  - Nausea [None]
  - Fatigue [None]
  - Decreased appetite [None]
  - Diarrhoea [None]
  - Constipation [None]
  - Mucosal inflammation [None]
  - Vomiting [None]
  - Dry skin [None]
  - Skin exfoliation [None]
  - Weight fluctuation [None]
  - Pain [None]
  - Stomatitis [None]
  - Back pain [None]
  - Rash [None]
  - Poor venous access [None]
  - Groin infection [None]
  - Lethargy [None]
